FAERS Safety Report 5272934-X (Version None)
Quarter: 2007Q2

REPORT INFORMATION
  Report Type: 
  Country: None (occurrence: None)
  Receive Date: 20070322
  Receipt Date: 20060510
  Transmission Date: 20071010
  Serious: Yes (Hospitalization)
  Sender: FDA-Public Use
  Company Number: FR-AVENTIS-200615048GDDC

PATIENT
  Age: 64 Year
  Sex: Female

DRUGS (6)
  1. GLYBURIDE [Suspect]
     Indication: DIABETES MELLITUS NON-INSULIN-DEPENDENT
     Route: 048
     Dates: start: 20020101
  2. PEGASYS [Suspect]
     Route: 058
     Dates: start: 20051109, end: 20060110
  3. COPEGUS [Suspect]
     Route: 048
     Dates: start: 20051109, end: 20060110
  4. GRANOCYTE ^RHONE-POULENC^ [Suspect]
     Indication: NEUTROPENIA
     Dosage: DOSE: 1 AMPULE
     Route: 048
     Dates: start: 20051121, end: 20060110
  5. LORAZEPAM [Suspect]
     Route: 048
     Dates: start: 20051101
  6. MANTADIX [Suspect]
     Indication: HEPATIC CIRRHOSIS
     Dosage: DOSE: 200/100
     Route: 048
     Dates: start: 20051109, end: 20060110

REACTIONS (1)
  - SARCOIDOSIS [None]
